FAERS Safety Report 9354580 (Version 2)
Quarter: 2013Q3

REPORT INFORMATION
  Report Type: Spontaneous
  Country: US (occurrence: US)
  Receive Date: 20130618
  Receipt Date: 20130701
  Transmission Date: 20140515
  Serious: Yes (Hospitalization)
  Sender: FDA-Public Use
  Company Number: US-BAXTER-2013BAX022100

PATIENT
  Age: 60 Year
  Sex: Male

DRUGS (3)
  1. DIANEAL LOW CALCIUM [Suspect]
     Indication: PERITONEAL DIALYSIS
     Dosage: TOTAL FILL VOLUME 12 LITERS
     Route: 033
     Dates: start: 2012
  2. DIANEAL LOW CALCIUM [Suspect]
     Indication: PERITONEAL DIALYSIS
     Dosage: TOTAL FILL VOLUMES 12 LITERS
     Route: 033
     Dates: start: 2012
  3. EXTRANEAL [Suspect]
     Indication: PERITONEAL DIALYSIS
     Dosage: LAST FILL
     Route: 033
     Dates: start: 2012

REACTIONS (8)
  - Pneumonia [Recovered/Resolved]
  - Blood pressure increased [Recovered/Resolved]
  - Dysstasia [Recovering/Resolving]
  - Anaemia [Recovering/Resolving]
  - Chest pain [Recovered/Resolved]
  - Dizziness [Recovered/Resolved]
  - Asthenia [Recovering/Resolving]
  - Hypertension [Recovering/Resolving]
